FAERS Safety Report 10420028 (Version 1)
Quarter: 2014Q3

REPORT INFORMATION
  Report Type: Spontaneous
  Country: SE (occurrence: SE)
  Receive Date: 20140829
  Receipt Date: 20140829
  Transmission Date: 20150326
  Serious: Yes (Life-Threatening, Hospitalization)
  Sender: FDA-Public Use
  Company Number: SE-ASTRAZENECA-2014SE64666

PATIENT
  Age: 60 Year
  Sex: Female

DRUGS (5)
  1. SEROQUEL [Suspect]
     Active Substance: QUETIAPINE FUMARATE
     Route: 048
     Dates: start: 20130423
  2. SEROQUEL [Suspect]
     Active Substance: QUETIAPINE FUMARATE
     Dosage: TOTAL OF 60 TABLETS, EACH 50 MG SEROQUEL TABLETS, A TOTAL OF 3 GRAMS
     Route: 048
     Dates: start: 20130509, end: 20130509
  3. INOLAXOL [Concomitant]
     Route: 048
  4. MIRTAZAPINE. [Concomitant]
     Active Substance: MIRTAZAPINE
  5. OXASCAND [Concomitant]
     Active Substance: OXAZEPAM

REACTIONS (3)
  - Poisoning [Recovered/Resolved]
  - Vomiting [Unknown]
  - Suicide attempt [Unknown]

NARRATIVE: CASE EVENT DATE: 20130509
